FAERS Safety Report 8495441-X (Version None)
Quarter: 2012Q3

REPORT INFORMATION
  Report Type: 
  Country: None (occurrence: None)
  Receive Date: 20120709
  Receipt Date: 20120705
  Transmission Date: 20120928
  Serious: Yes (Hospitalization, Other)
  Sender: FDA-Public Use
  Company Number: CH-PFIZER INC-2012160909

PATIENT
  Age: 84 Year
  Sex: Female

DRUGS (9)
  1. NORVASC [Concomitant]
     Dosage: 5 MG, 1X/DAY
     Route: 048
     Dates: start: 20120528
  2. PANTOPRAZOLE [Concomitant]
     Dosage: 40 MG, 1X/DAY
     Route: 048
  3. ATORVASTATIN CALCIUM [Suspect]
     Indication: AUTOIMMUNE HEPATITIS
     Dosage: 40 MG, 1X/DAY
     Route: 048
     Dates: start: 20120522
  4. PREDNISONE [Suspect]
     Indication: AUTOIMMUNE HEPATITIS
     Dosage: 7.5 MG, 1X/DAY
     Route: 048
     Dates: start: 20120101, end: 20120101
  5. ASPIRIN [Concomitant]
     Dosage: 100 MG, 1X/DAY
     Route: 048
     Dates: start: 20120523
  6. DIOVAN HCT [Concomitant]
     Indication: HYPERTENSION
     Dosage: 12.5 MG/80 MG, 1X/DAY
     Route: 048
  7. CALCIMAGON-D3 [Concomitant]
     Dosage: 1 DF, 1X/DAY
  8. AZATHIOPRINE SODIUM [Suspect]
     Indication: AUTOIMMUNE HEPATITIS
     Dosage: 50 MG, 1X/DAY
     Route: 048
     Dates: start: 20120527, end: 20120604
  9. PREDNISONE [Suspect]
     Dosage: 15 MG, 1X/DAY
     Route: 048
     Dates: start: 20120101

REACTIONS (2)
  - ADRENAL INSUFFICIENCY [None]
  - CHOLESTATIC LIVER INJURY [None]
